FAERS Safety Report 9186203 (Version 1)
Quarter: 2013Q1

REPORT INFORMATION
  Report Type: Spontaneous
  Country: US (occurrence: None)
  Receive Date: 20120628
  Receipt Date: 20120628
  Transmission Date: 20140127
  Serious: Yes (Hospitalization)
  Sender: FDA-Public Use
  Company Number: PHEH2011US04073

PATIENT
  Age: 49 Year
  Sex: Female
  Weight: 101.6 kg

DRUGS (11)
  1. RECLAST [Suspect]
     Indication: BONE DISORDER
     Dosage: 5MG/100ML INTRAVENOUS YEARLY
     Dates: start: 20110908
  2. ADVAIR (FLUTICASONE PROPIONATE, SALMETEROL, XINAFOATE) [Concomitant]
  3. ALBUTEROL (SALBUTAMOL) [Concomitant]
  4. PRISTIQ (DESVENLAXFINE SUCCINATE) [Concomitant]
  5. ABILIFY (ARIPIPRAZOLE) [Concomitant]
  6. LYRICA (PREGAMBLIN) [Concomitant]
  7. BENICAR (OLMESARTAN MEDOXOMIL) [Concomitant]
  8. SIMVASTATIN (SIMVASTATIN) [Concomitant]
  9. TRAZADONE (TRAZADONE) [Concomitant]
  10. TRILIPIX (CHOLINE FENOFIBRATE) [Concomitant]
  11. FLU (INFLUENZA VACCINE) [Concomitant]

REACTIONS (7)
  - Pyrexia [None]
  - Hyperhidrosis [None]
  - Dizziness [None]
  - Nausea [None]
  - Pain [None]
  - Chills [None]
  - Headache [None]
